FAERS Safety Report 11195956 (Version 1)
Quarter: 2015Q2

REPORT INFORMATION
  Report Type: Spontaneous
  Country: US (occurrence: None)
  Receive Date: 20150616
  Receipt Date: 20150616
  Transmission Date: 20150821
  Serious: Yes (Other)
  Sender: FDA-Public Use
  Company Number: None

PATIENT
  Sex: Male

DRUGS (5)
  1. SAW PALMETTO [Concomitant]
     Active Substance: SAW PALMETTO
  2. SYNTHROID [Concomitant]
     Active Substance: LEVOTHYROXINE SODIUM
  3. HARVONI [Suspect]
     Active Substance: LEDIPASVIR\SOFOSBUVIR
     Indication: CHRONIC HEPATITIS C
     Route: 048
     Dates: start: 20150202
  4. TYLENOL [Concomitant]
     Active Substance: ACETAMINOPHEN
  5. GLUCOSE/CHONDROITIN [Concomitant]

REACTIONS (1)
  - Headache [None]
